FAERS Safety Report 7214859-6 (Version None)
Quarter: 2011Q1

REPORT INFORMATION
  Report Type: 
  Country: None (occurrence: None)
  Receive Date: 20110107
  Receipt Date: 20100407
  Transmission Date: 20110831
  Serious: No
  Sender: FDA-Public Use
  Company Number: A0853939A

PATIENT
  Age: 66 Year
  Sex: Male

DRUGS (7)
  1. PLAVIX [Concomitant]
  2. BYETTA [Concomitant]
  3. HUMALOG [Concomitant]
  4. LASIX [Concomitant]
  5. LOVAZA [Suspect]
     Dosage: 4CAP PER DAY
     Route: 048
     Dates: start: 20070101
  6. RAMIPRIL [Concomitant]
  7. DIGOXIN [Concomitant]

REACTIONS (1)
  - NAUSEA [None]
